FAERS Safety Report 16551081 (Version 1)
Quarter: 2019Q3

REPORT INFORMATION
  Report Type: Spontaneous
  Country: GB (occurrence: GB)
  Receive Date: 20190710
  Receipt Date: 20190710
  Transmission Date: 20191004
  Serious: Yes (Other)
  Sender: FDA-Public Use
  Company Number: GB-GLAXOSMITHKLINE-GB2019122373

PATIENT
  Age: 56 Year
  Sex: Male

DRUGS (1)
  1. MALARONE [Suspect]
     Active Substance: ATOVAQUONE\PROGUANIL HYDROCHLORIDE
     Indication: MALARIA PROPHYLAXIS
     Dosage: 1 TABLET/DAY FOR 37 DAYS, NONE FOR 21 DAYS THEN 1 TAB FOR 37 DAYS + REPEATED FOR PAST 7 YEARS.
     Route: 048
     Dates: start: 2012

REACTIONS (1)
  - Cornea verticillata [Not Recovered/Not Resolved]

NARRATIVE: CASE EVENT DATE: 20190603
